FAERS Safety Report 6157732-7 (Version None)
Quarter: 2009Q2

REPORT INFORMATION
  Report Type: 
  Country: None (occurrence: None)
  Receive Date: 20090414
  Receipt Date: 20090403
  Transmission Date: 20091009
  Serious: Yes (Hospitalization)
  Sender: FDA-Public Use
  Company Number: 2009040019

PATIENT
  Sex: Female

DRUGS (1)
  1. ASTEPRO [Suspect]
     Dosage: IN
     Dates: start: 20090330

REACTIONS (2)
  - DYSGEUSIA [None]
  - PNEUMONIA [None]
